FAERS Safety Report 5048635-X (Version None)
Quarter: 2006Q3

REPORT INFORMATION
  Report Type: 
  Country: None (occurrence: None)
  Receive Date: 20060705
  Receipt Date: 20060613
  Transmission Date: 20061208
  Serious: Yes (Other)
  Sender: FDA-Public Use
  Company Number: NL200606003369

PATIENT
  Age: 85 Year
  Sex: Female

DRUGS (7)
  1. FORTEO [Suspect]
     Indication: OSTEOPOROSIS
     Dosage: 20 UG, SUBCUTANEOUS
     Route: 058
     Dates: start: 20060515
  2. FORTEO PEN (FORTEO PEN) [Concomitant]
  3. NORTRILEN (NORTRIPTYLINE HYDROCHLORIDE) [Concomitant]
  4. ADALAT OROS (NIFEDIPINE) [Concomitant]
  5. CARBASALATE CALCIUM (CARBASALATE CALCIUM) [Concomitant]
  6. METHENAMINE (METHENAMINE) [Concomitant]
  7. MOVICOLON (MACROGOL, POTASSIUM CHLORIDE, SODIUM BICARBONATE, SODIUM CH [Concomitant]

REACTIONS (2)
  - ARTHRALGIA [None]
  - NEURALGIA [None]
